FAERS Safety Report 9841485 (Version 1)
Quarter: 2013Q4

REPORT INFORMATION
  Report Type: Spontaneous
  Country: US (occurrence: None)
  Receive Date: 20131211
  Receipt Date: 20131211
  Transmission Date: 20140711
  Serious: Yes (Other)
  Sender: FDA-Public Use
  Company Number: ALL1-2012-02248

PATIENT
  Age: 27 Year
  Sex: Male
  Weight: 77.1 kg

DRUGS (1)
  1. ADDERALL XR [Suspect]
     Indication: ATTENTION DEFICIT/HYPERACTIVITY DISORDER
     Route: 048
     Dates: start: 200108, end: 200108

REACTIONS (4)
  - Depression [None]
  - Drug effect increased [None]
  - Anxiety [None]
  - Drug prescribing error [None]
